FAERS Safety Report 7394775-X (Version None)
Quarter: 2011Q2

REPORT INFORMATION
  Report Type: 
  Country: None (occurrence: None)
  Receive Date: 20110405
  Receipt Date: 20110309
  Transmission Date: 20111010
  Serious: No
  Sender: FDA-Public Use
  Company Number: US-B.I. PHARMACEUTICALS,INC./RIDGEFIELD-2011-BP-07531BP

PATIENT
  Sex: Female

DRUGS (9)
  1. SYNTHROID [Concomitant]
     Indication: HYPOTHYROIDISM
  2. METOPROLOL TARTRATE [Concomitant]
     Indication: ATRIAL FIBRILLATION
  3. CALCIUM [Concomitant]
     Indication: SUPPLEMENTATION THERAPY
  4. TOPROL-XL [Concomitant]
     Indication: HEART RATE IRREGULAR
  5. MULTI-VITAMINS [Concomitant]
     Indication: SUPPLEMENTATION THERAPY
  6. FISH OIL [Concomitant]
     Indication: SUPPLEMENTATION THERAPY
  7. PRADAXA [Suspect]
     Indication: ATRIAL FIBRILLATION
     Dosage: 300 MG
     Route: 048
     Dates: start: 20110224
  8. BONIVA [Concomitant]
     Indication: BONE DENSITY DECREASED
  9. VITAMIN D [Concomitant]
     Indication: SUPPLEMENTATION THERAPY

REACTIONS (3)
  - DIZZINESS [None]
  - HYPERTENSION [None]
  - HEAD DISCOMFORT [None]
